FAERS Safety Report 18357289 (Version 1)
Quarter: 2020Q4

REPORT INFORMATION
  Report Type: Not Available
  Country: None (occurrence: CA)
  Receive Date: 20201007
  Receipt Date: 20201007
  Transmission Date: 20210114
  Serious: No
  Sender: FDA-Public Use
  Company Number: US-AKORN INC.-153744

PATIENT
  Age: 65 Year
  Sex: Female

DRUGS (1)
  1. LACTULOSE SOLUTION USP 473ML [Suspect]
     Active Substance: LACTULOSE

REACTIONS (2)
  - Diarrhoea [None]
  - Vomiting [None]

NARRATIVE: CASE EVENT DATE: 20200915
